FAERS Safety Report 5862410-5 (Version None)
Quarter: 2008Q3

REPORT INFORMATION
  Report Type: 
  Country: None (occurrence: None)
  Receive Date: 20080818
  Receipt Date: 20080626
  Transmission Date: 20090109
  Serious: No
  Sender: FDA-Public Use
  Company Number: WAES 0806USA08761

PATIENT
  Age: 64 Year
  Sex: Female

DRUGS (2)
  1. JANUVIA [Suspect]
     Indication: BLOOD GLUCOSE INCREASED
     Dosage: PO
     Route: 048
     Dates: start: 20080621
  2. VITAMIN D (UNSPECIFIED) [Concomitant]

REACTIONS (1)
  - DERMATITIS [None]
